FAERS Safety Report 5342423-2 (Version None)
Quarter: 2007Q2

REPORT INFORMATION
  Report Type: 
  Country: None (occurrence: None)
  Receive Date: 20070601
  Receipt Date: 20070524
  Transmission Date: 20071010
  Serious: Yes (Life-Threatening)
  Sender: FDA-Public Use
  Company Number: JP-ROCHE-486305

PATIENT
  Age: 1 Day
  Sex: Male
  Weight: 3.3 kg

DRUGS (7)
  1. TAMIFLU [Suspect]
     Indication: INFLUENZA
     Route: 048
     Dates: start: 20070303, end: 20070304
  2. VEEN D [Concomitant]
     Dates: start: 20070304, end: 20070304
  3. HESPANDER [Concomitant]
     Dates: start: 20070304, end: 20070304
  4. PANSPORIN [Concomitant]
     Dates: start: 20070304, end: 20070304
  5. LACTEC [Concomitant]
     Dosage: REPORTED AS LACTATED RINGERS SOLUTION.
     Dates: start: 20070304, end: 20070304
  6. SOLITA-T3 [Concomitant]
     Dates: start: 20070304, end: 20070304
  7. METENARIN [Concomitant]
     Route: 064
     Dates: start: 20070304, end: 20070304

REACTIONS (1)
  - DISSEMINATED INTRAVASCULAR COAGULATION IN NEWBORN [None]
